FAERS Safety Report 6060390-3 (Version None)
Quarter: 2009Q1

REPORT INFORMATION
  Report Type: 
  Country: None (occurrence: None)
  Receive Date: 20090127
  Receipt Date: 20090127
  Transmission Date: 20090719
  Serious: No
  Sender: FDA-Public Use
  Company Number: None

PATIENT
  Age: 64 Year
  Sex: Male
  Weight: 104 kg

DRUGS (2)
  1. NEUPOGEN [Suspect]
  2. HYDROXYCHLOROQUINE SULFATE [Suspect]

REACTIONS (2)
  - PANCYTOPENIA [None]
  - SEPSIS [None]
